FAERS Safety Report 7807963-2 (Version None)
Quarter: 2011Q4

REPORT INFORMATION
  Report Type: 
  Country: None (occurrence: None)
  Receive Date: 20111011
  Receipt Date: 20111011
  Transmission Date: 20120403
  Serious: No
  Sender: FDA-Public Use
  Company Number: None

PATIENT
  Age: 27 Year
  Sex: Male
  Weight: 72.574 kg

DRUGS (1)
  1. LEVAQUIN [Suspect]

REACTIONS (4)
  - PLANTAR FASCIITIS [None]
  - MYALGIA [None]
  - TENDONITIS [None]
  - MOVEMENT DISORDER [None]
